FAERS Safety Report 24970610 (Version 3)
Quarter: 2025Q1

REPORT INFORMATION
  Report Type: Spontaneous
  Country: US (occurrence: US)
  Receive Date: 20250214
  Receipt Date: 20250312
  Transmission Date: 20250409
  Serious: No
  Sender: COSETTE PHARMACEUTICALS INC
  Company Number: US-COSETTE-CP2025US000099

PATIENT
  Age: 84 Year
  Sex: Female

DRUGS (1)
  1. MIGERGOT [Suspect]
     Active Substance: CAFFEINE\ERGOTAMINE TARTRATE
     Indication: Migraine
     Route: 065

REACTIONS (4)
  - Illness [Unknown]
  - Calculus bladder [Unknown]
  - Drug ineffective [Unknown]
  - Product substitution issue [Unknown]
